FAERS Safety Report 18276888 (Version 1)
Quarter: 2020Q3

REPORT INFORMATION
  Report Type: Spontaneous
  Country: US (occurrence: US)
  Receive Date: 20200903
  Receipt Date: 20200903
  Transmission Date: 20201103
  Serious: No
  Sender: FDA-Public Use
  Company Number: None

PATIENT
  Age: 3 Decade
  Sex: Female

DRUGS (2)
  1. ARBIDOL [Suspect]
     Active Substance: UMIFENOVIR
     Indication: COVID-19
     Dates: start: 2020, end: 2020
  2. INTERFERON [Suspect]
     Active Substance: INTERFERON
     Indication: COVID-19
     Dates: start: 2020, end: 2020

REACTIONS (9)
  - Pyrexia [None]
  - Diarrhoea [None]
  - Viral test positive [None]
  - SARS-CoV-2 test positive [None]
  - Vomiting [None]
  - Leukopenia [None]
  - Product use in unapproved indication [None]
  - Product use issue [None]
  - Nausea [None]
